FAERS Safety Report 7648144-5 (Version None)
Quarter: 2011Q3

REPORT INFORMATION
  Report Type: 
  Country: None (occurrence: None)
  Receive Date: 20110801
  Receipt Date: 20110725
  Transmission Date: 20111222
  Serious: Yes (Other)
  Sender: FDA-Public Use
  Company Number: JP-PFIZER INC-2011167796

PATIENT
  Sex: Female

DRUGS (2)
  1. ESTRADIOL [Concomitant]
     Indication: MENOPAUSAL SYMPTOMS
  2. PROVERA [Suspect]
     Indication: MENOPAUSAL SYMPTOMS
     Route: 048

REACTIONS (2)
  - CHLOASMA [None]
  - POLYP [None]
